FAERS Safety Report 16724704 (Version 1)
Quarter: 2019Q3

REPORT INFORMATION
  Report Type: Spontaneous
  Country: US (occurrence: US)
  Receive Date: 20190704
  Receipt Date: 20190704
  Transmission Date: 20191005
  Serious: Yes (Hospitalization)
  Sender: FDA-Public Use
  Company Number: None

PATIENT
  Age: 80 Year
  Sex: Female
  Weight: 48.1 kg

DRUGS (2)
  1. TAXOL [Suspect]
     Active Substance: PACLITAXEL
     Dates: end: 20180417
  2. CARBOPLATIN. [Suspect]
     Active Substance: CARBOPLATIN
     Dates: end: 20180417

REACTIONS (9)
  - Pleural effusion [None]
  - Pleural thickening [None]
  - Lung consolidation [None]
  - Atelectasis [None]
  - Pneumonia [None]
  - Lung disorder [None]
  - Hiatus hernia [None]
  - Dyspnoea [None]
  - Radiation injury [None]

NARRATIVE: CASE EVENT DATE: 20190623
